FAERS Safety Report 8955964 (Version 1)
Quarter: 2012Q4

REPORT INFORMATION
  Report Type: 
  Country: PT (occurrence: PT)
  Receive Date: 20121210
  Receipt Date: 20121210
  Transmission Date: 20130627
  Serious: Yes (Disabling)
  Sender: FDA-Public Use
  Company Number: PT-TEVA-373590ISR

PATIENT
  Age: 36 Year
  Sex: Female
  Weight: 55 kg

DRUGS (5)
  1. IBUPROFEN [Suspect]
     Indication: PAIN
     Dosage: 600 Milligram Daily; 1 ? tablet
     Route: 048
     Dates: start: 20121116, end: 20121118
  2. AVONEX [Concomitant]
     Indication: MULTIPLE SCLEROSIS
     Dosage: Solution for injection in pre-filled pen
     Route: 030
     Dates: start: 201111
  3. CIPRALEX [Concomitant]
     Indication: DEPRESSION
     Route: 048
     Dates: start: 201105
  4. ALPRAZOLAM [Concomitant]
     Indication: INSOMNIA
     Route: 048
     Dates: start: 201105
  5. IBUPROFENO ABBOTT 600 MG COMPRIMIDOS REVESTIDOS [Concomitant]
     Indication: PAIN
     Route: 048
     Dates: start: 201111, end: 201211

REACTIONS (2)
  - Oropharyngeal discomfort [Recovered/Resolved]
  - Epigastric discomfort [Recovered/Resolved]
